FAERS Safety Report 6295424-4 (Version None)
Quarter: 2009Q3

REPORT INFORMATION
  Report Type: 
  Country: None (occurrence: None)
  Receive Date: 20090803
  Receipt Date: 20090730
  Transmission Date: 20100115
  Serious: Yes (Death)
  Sender: FDA-Public Use
  Company Number: PHEH2009US06814

PATIENT
  Sex: Female

DRUGS (16)
  1. GLEEVEC [Suspect]
     Indication: CHRONIC MYELOID LEUKAEMIA
     Dosage: 400 MG, QD
     Route: 048
     Dates: start: 20090301
  2. ASPIRIN [Concomitant]
  3. NORVASC [Concomitant]
  4. IPRATROPIUM BROMIDE [Concomitant]
  5. ALBUTEROL [Concomitant]
  6. NEXIUM [Concomitant]
  7. NASONEX [Concomitant]
  8. ADVAIR HFA [Concomitant]
  9. FAMVIR                                  /NET/ [Concomitant]
  10. PREDNISONE TAB [Concomitant]
  11. ZETIA [Concomitant]
  12. MEPRON [Concomitant]
  13. LANTUS [Concomitant]
  14. PROGRAF [Concomitant]
  15. DOXYCYCLINE [Concomitant]
  16. FUROSEMIDE [Concomitant]

REACTIONS (1)
  - ACUTE MYOCARDIAL INFARCTION [None]
